FAERS Safety Report 24766664 (Version 1)
Quarter: 2024Q4

REPORT INFORMATION
  Report Type: Report from Study
  Country: US (occurrence: US)
  Receive Date: 20241223
  Receipt Date: 20241223
  Transmission Date: 20250114
  Serious: Yes (Other)
  Sender: GILEAD
  Company Number: US-GILEAD-2024-0697874

PATIENT
  Age: 77 Year
  Sex: Female

DRUGS (1)
  1. TENOFOVIR ALAFENAMIDE [Suspect]
     Active Substance: TENOFOVIR ALAFENAMIDE
     Indication: Product used for unknown indication
     Dosage: UNK
     Route: 065

REACTIONS (1)
  - Chemotherapy [Not Recovered/Not Resolved]

NARRATIVE: CASE EVENT DATE: 20241101
